FAERS Safety Report 18451349 (Version 1)
Quarter: 2020Q4

REPORT INFORMATION
  Report Type: Spontaneous
  Country: ES (occurrence: ES)
  Receive Date: 20201030
  Receipt Date: 20201030
  Transmission Date: 20210114
  Serious: Yes (Life-Threatening, Other)
  Sender: FDA-Public Use
  Company Number: ES-ABBVIE-20K-144-3632242-00

PATIENT

DRUGS (1)
  1. IMBRUVICA [Suspect]
     Active Substance: IBRUTINIB
     Indication: CHRONIC LYMPHOCYTIC LEUKAEMIA
     Route: 048
     Dates: start: 201405

REACTIONS (29)
  - Ecchymosis [Unknown]
  - Haematoma [Unknown]
  - Neoplasm [Unknown]
  - Upper respiratory tract infection [Unknown]
  - Herpes virus infection [Unknown]
  - Anaemia [Unknown]
  - Autoimmune haemolytic anaemia [Unknown]
  - Blood alkaline phosphatase [Unknown]
  - Lung disorder [Unknown]
  - Infection [Unknown]
  - Vomiting [Unknown]
  - Pruritus [Unknown]
  - Atrial fibrillation [Unknown]
  - Hypertension [Unknown]
  - Dyspepsia [Unknown]
  - Pneumonia [Unknown]
  - Thrombocytopenia [Unknown]
  - Diarrhoea [Unknown]
  - Nausea [Unknown]
  - Rash [Unknown]
  - Fracture [Unknown]
  - Urinary tract infection [Unknown]
  - Arthralgia [Unknown]
  - Back pain [Unknown]
  - Constipation [Unknown]
  - Eye disorder [Unknown]
  - COVID-19 [Unknown]
  - Fungal infection [Unknown]
  - Neutropenia [Unknown]
